FAERS Safety Report 14647494 (Version 1)
Quarter: 2018Q1

REPORT INFORMATION
  Report Type: Spontaneous
  Country: IT (occurrence: IT)
  Receive Date: 20180316
  Receipt Date: 20180316
  Transmission Date: 20180509
  Serious: Yes (Other)
  Sender: FDA-Public Use
  Company Number: PHHY2017IT052522

PATIENT
  Age: 16 Year
  Sex: Female

DRUGS (1)
  1. VOLTADOL PATCH [Suspect]
     Active Substance: DICLOFENAC SODIUM
     Indication: PRODUCT USED FOR UNKNOWN INDICATION
     Dosage: 140 MG, PRN
     Route: 062
     Dates: start: 20170201

REACTIONS (2)
  - Rash pruritic [Unknown]
  - Injury [Unknown]

NARRATIVE: CASE EVENT DATE: 20170202
